FAERS Safety Report 16846008 (Version 2)
Quarter: 2019Q4

REPORT INFORMATION
  Report Type: Report from Study
  Country: DE (occurrence: DE)
  Receive Date: 20190924
  Receipt Date: 20191015
  Transmission Date: 20200122
  Serious: Yes (Hospitalization, Other)
  Sender: FDA-Public Use
  Company Number: DE-BIOMARINAP-DE-2019-125057

PATIENT

DRUGS (15)
  1. CHLORALHYDRAT [Concomitant]
     Active Substance: CHLORAL HYDRATE
     Dosage: UNK
     Dates: start: 20190716, end: 20190716
  2. IBUPROFEN. [Concomitant]
     Active Substance: IBUPROFEN
     Indication: APHTHOUS ULCER
     Dosage: UNK
     Dates: start: 20190702
  3. DEXAMETHASON [DEXAMETHASONE] [Concomitant]
     Active Substance: DEXAMETHASONE
     Dosage: UNK
     Dates: start: 20190730, end: 20190730
  4. CHLORALHYDRAT [Concomitant]
     Active Substance: CHLORAL HYDRATE
     Indication: PREMEDICATION
     Dates: start: 20190702, end: 20190702
  5. MYDRIATICUM [Concomitant]
     Active Substance: TROPICAMIDE
     Indication: OPHTHALMIC SCAN
     Dates: start: 20161205
  6. DEXAMETHASON [DEXAMETHASONE] [Concomitant]
     Active Substance: DEXAMETHASONE
     Indication: PREMEDICATION
     Dosage: UNK
     Dates: start: 20190702, end: 20190702
  7. DEXAMETHASON [DEXAMETHASONE] [Concomitant]
     Active Substance: DEXAMETHASONE
     Dosage: UNK
     Dates: start: 20190716, end: 20190716
  8. CETIRIZINE [Concomitant]
     Active Substance: CETIRIZINE HYDROCHLORIDE
     Indication: PREMEDICATION
     Dates: start: 20151012
  9. BMN 190 [Suspect]
     Active Substance: CERLIPONASE ALFA
     Indication: NEURONAL CEROID LIPOFUSCINOSIS
     Dosage: 300 MILLIGRAM, QOW
     Route: 020
     Dates: start: 20190730
  10. VALPROAT ACID [Concomitant]
     Indication: EPILEPSY
     Dates: start: 20171219
  11. IBUPROFEN. [Concomitant]
     Active Substance: IBUPROFEN
     Indication: PREMEDICATION
     Dosage: UNK
     Dates: start: 20160212
  12. CHLORALHYDRAT [Concomitant]
     Active Substance: CHLORAL HYDRATE
     Dosage: UNK
     Dates: start: 20190730, end: 20190730
  13. ACICLOVIR [Concomitant]
     Active Substance: ACYCLOVIR
     Indication: ORAL HERPES
     Dates: start: 20161023
  14. MACROGOL [Concomitant]
     Active Substance: POLYETHYLENE GLYCOLS
     Indication: CONSTIPATION
     Dates: start: 20150104
  15. ANTRA [OMEPRAZOLE MAGNESIUM] [Concomitant]
     Indication: OESOPHAGITIS
     Dates: start: 20151019

REACTIONS (1)
  - Device related infection [Recovered/Resolved]

NARRATIVE: CASE EVENT DATE: 20190801
